FAERS Safety Report 18039617 (Version 1)
Quarter: 2020Q3

REPORT INFORMATION
  Report Type: Spontaneous
  Country: AU (occurrence: AU)
  Receive Date: 20200717
  Receipt Date: 20200717
  Transmission Date: 20201103
  Serious: Yes (Life-Threatening, Hospitalization)
  Sender: FDA-Public Use
  Company Number: AU-MYLANLABS-2020M1065154

PATIENT
  Age: 41 Year
  Sex: Female

DRUGS (16)
  1. EPINEPHRINE. [Suspect]
     Active Substance: EPINEPHRINE
     Indication: PULSELESS ELECTRICAL ACTIVITY
     Dosage: INFUSION
  2. HYDROCORTISONE. [Suspect]
     Active Substance: HYDROCORTISONE
     Indication: CARDIAC ARREST
     Dosage: 100 MILLIGRAM
     Route: 042
  3. VASOPRESSIN. [Suspect]
     Active Substance: VASOPRESSIN
     Dosage: 1.2 INTERNATIONAL UNIT, QH 60U IN 60 ML OF 5% GLUCOSE AT 24 H POST ECMO
     Route: 065
  4. MIDAZOLAM. [Concomitant]
     Active Substance: MIDAZOLAM
     Indication: GENERAL ANAESTHESIA
     Dosage: 2 MILLIGRAM
     Route: 065
  5. EPINEPHRINE. [Suspect]
     Active Substance: EPINEPHRINE
     Dosage: 30 MILLILITER, QH 8MG IN 100 ML OF 5% GLUCOSE IMMEDIATELY POST ECLS (0.625 MCG/KG/MINUTE)
     Route: 065
  6. HYDROCORTISONE. [Suspect]
     Active Substance: HYDROCORTISONE
     Indication: PULSELESS ELECTRICAL ACTIVITY
     Dosage: 100 MILLIGRAM, Q6H FOR 5 DAYS BEFORE BEING WEANED OFF
     Route: 042
  7. PROPOFOL. [Concomitant]
     Active Substance: PROPOFOL
     Indication: GENERAL ANAESTHESIA
     Dosage: 100 MILLIGRAM
     Route: 065
  8. EPINEPHRINE. [Suspect]
     Active Substance: EPINEPHRINE
     Dosage: 10 MILLILITER, QH 8MG IN 100 ML OF 5% GLUCOSE 12H POST ECLS (0.208 MCG/KG/MINUTE)
     Route: 065
  9. EPINEPHRINE. [Suspect]
     Active Substance: EPINEPHRINE
     Dosage: 8 MILLILITER, QH 8MG IN 100 ML OF 5% GLUCOSE 24H POST ECLS (0.167 MCG/KG/MINUTE)
     Route: 065
  10. METARAMINOL [Suspect]
     Active Substance: METARAMINOL
     Indication: HYPOTENSION
     Route: 065
  11. VASOPRESSIN. [Suspect]
     Active Substance: VASOPRESSIN
     Indication: CARDIAC ARREST
     Dosage: UNK INITIAL DOSE ADMINISTERED PRIOR TO ECMO NOT STATED
     Route: 065
  12. EPINEPHRINE. [Suspect]
     Active Substance: EPINEPHRINE
     Indication: CARDIAC ARREST
     Dosage: INITIAL DOSE
     Route: 040
  13. VASOPRESSIN. [Suspect]
     Active Substance: VASOPRESSIN
     Indication: PULSELESS ELECTRICAL ACTIVITY
     Dosage: 2.4 INTERNATIONAL UNIT, QH 60U IN 60 ML OF 5% GLUCOSE AT IMMEDIATELY POST ECMO AND 12H POST ECMO
     Route: 065
  14. FENTANYL. [Concomitant]
     Active Substance: FENTANYL
     Indication: GENERAL ANAESTHESIA
     Dosage: 200 MICROGRAM
     Route: 065
  15. GLUCOSE [Concomitant]
     Active Substance: DEXTROSE
     Indication: PRODUCT USED FOR UNKNOWN INDICATION
     Dosage: USED AS SOLVENT FOR ADRENALINE AND VASOPRESSIN
     Route: 065
  16. ROCURONIUM [Suspect]
     Active Substance: ROCURONIUM BROMIDE
     Indication: GENERAL ANAESTHESIA
     Dosage: 40 MILLIGRAM
     Route: 065

REACTIONS (5)
  - Pulseless electrical activity [Recovered/Resolved]
  - Anaphylactic reaction [Recovered/Resolved]
  - Treatment failure [Recovered/Resolved]
  - Cardiac arrest [Recovered/Resolved]
  - Hypotension [Recovered/Resolved]
